FAERS Safety Report 6694882-0 (Version None)
Quarter: 2010Q2

REPORT INFORMATION
  Report Type: 
  Country: None (occurrence: None)
  Receive Date: 20100423
  Receipt Date: 20100416
  Transmission Date: 20101027
  Serious: No
  Sender: FDA-Public Use
  Company Number: US-B.I. PHARMACEUTICALS,INC./RIDGEFIELD-2010-BP-03811BP

PATIENT
  Age: 59 Year
  Sex: Male

DRUGS (1)
  1. MICARDIS [Suspect]
     Route: 048

REACTIONS (2)
  - PLANTAR FASCIITIS [None]
  - TENDONITIS [None]
